FAERS Safety Report 19633852 (Version 2)
Quarter: 2021Q3

REPORT INFORMATION
  Report Type: Spontaneous
  Country: GB (occurrence: GB)
  Receive Date: 20210729
  Receipt Date: 20210805
  Transmission Date: 20211014
  Serious: Yes (Hospitalization, Other)
  Sender: FDA-Public Use
  Company Number: GB-TAKEDA-2021TUS046612

PATIENT
  Age: 60 Year
  Sex: Female
  Weight: 56 kg

DRUGS (3)
  1. MOVIPREP [Suspect]
     Active Substance: ASCORBIC ACID\POLYETHYLENE GLYCOL 3350\POTASSIUM CHLORIDE\SODIUM ASCORBATE\SODIUM CHLORIDE\SODIUM SULFATE
     Indication: ILL-DEFINED DISORDER
     Dosage: 3350 UNK QD
     Route: 048
     Dates: start: 20210719, end: 20210719
  2. FENTANYL. [Suspect]
     Active Substance: FENTANYL
     Indication: SEDATIVE THERAPY
     Dosage: 50 MICROGRAM
     Route: 065
     Dates: start: 20210720, end: 20210720
  3. SERTRALINE [Concomitant]
     Active Substance: SERTRALINE HYDROCHLORIDE
     Indication: PRODUCT USED FOR UNKNOWN INDICATION

REACTIONS (7)
  - Syncope [Unknown]
  - Dehydration [Recovering/Resolving]
  - Vomiting [Unknown]
  - Overdose [Unknown]
  - Delirium [Unknown]
  - Sedation complication [Unknown]
  - Chills [Unknown]

NARRATIVE: CASE EVENT DATE: 20210720
